FAERS Safety Report 9067865 (Version 3)
Quarter: 2013Q1

REPORT INFORMATION
  Report Type: Spontaneous
  Country: FR (occurrence: FR)
  Receive Date: 20130215
  Receipt Date: 20130318
  Transmission Date: 20140127
  Serious: Yes (Hospitalization, Disabling)
  Sender: FDA-Public Use
  Company Number: FR-BIOGENIDEC-2013BI014889

PATIENT
  Age: 29 Year
  Sex: Female
  Weight: 76 kg

DRUGS (3)
  1. TYSABRI [Suspect]
     Indication: MULTIPLE SCLEROSIS
     Route: 042
     Dates: start: 20080619, end: 200906
  2. TYSABRI [Suspect]
     Indication: MULTIPLE SCLEROSIS
     Route: 042
     Dates: start: 20120716, end: 20120906
  3. GILENYA [Concomitant]
     Indication: MULTIPLE SCLEROSIS
     Dates: start: 20121128, end: 20130206

REACTIONS (1)
  - Rebound effect [Not Recovered/Not Resolved]
